FAERS Safety Report 8789815 (Version 2)
Quarter: 2012Q4

REPORT INFORMATION
  Report Type: 
  Country: DE (occurrence: GB)
  Receive Date: 20120917
  Receipt Date: 20120921
  Transmission Date: 20130627
  Serious: Yes (Hospitalization)
  Sender: FDA-Public Use
  Company Number: GB-FRI-1000038539

PATIENT
  Age: 64 None
  Sex: Male

DRUGS (3)
  1. MEMANTINE [Suspect]
     Indication: DEMENTIA ALZHEIMER^S TYPE
     Dosage: 50 mg
     Route: 048
     Dates: start: 20120625, end: 20120630
  2. MEMANTINE [Suspect]
     Dosage: 200 mg
     Route: 048
     Dates: start: 20120630
  3. DONEPEZIL [Concomitant]
     Indication: DEMENTIA ALZHEIMER^S TYPE
     Dosage: 10 mg
     Dates: end: 201208

REACTIONS (6)
  - Hallucination [Not Recovered/Not Resolved]
  - Aggression [Not Recovered/Not Resolved]
  - Withdrawal syndrome [Not Recovered/Not Resolved]
  - Accidental overdose [Not Recovered/Not Resolved]
  - Confusional state [Not Recovered/Not Resolved]
  - Gait disturbance [Not Recovered/Not Resolved]
